FAERS Safety Report 10343629 (Version 4)
Quarter: 2014Q4

REPORT INFORMATION
  Report Type: Report from Study
  Country: GB (occurrence: GB)
  Receive Date: 20140725
  Receipt Date: 20141201
  Transmission Date: 20150528
  Serious: Yes (Death, Hospitalization)
  Sender: FDA-Public Use
  Company Number: GB-GLAXOSMITHKLINE-B1017728A

PATIENT
  Sex: Male
  Weight: 85 kg

DRUGS (7)
  1. PAZOPANIB [Suspect]
     Active Substance: PAZOPANIB
     Indication: BLADDER TRANSITIONAL CELL CARCINOMA
     Dosage: 800 MG, UNK
     Route: 048
     Dates: start: 20140714, end: 20140721
  2. GLICLAZIDE [Concomitant]
     Active Substance: GLICLAZIDE
     Indication: DIABETES MELLITUS
     Route: 048
     Dates: start: 2002, end: 20140918
  3. ORAMORPH SR SUSTAINED RELEASE [Suspect]
     Active Substance: MORPHINE SULFATE
     Indication: PAIN
     Route: 048
     Dates: start: 20140703, end: 20140918
  4. PARACETAMOL [Concomitant]
     Active Substance: ACETAMINOPHEN
     Indication: PAIN
     Route: 048
     Dates: start: 20140514, end: 20140918
  5. METFORMIN [Concomitant]
     Active Substance: METFORMIN HYDROCHLORIDE
     Indication: DIABETES MELLITUS
     Route: 048
     Dates: start: 2002, end: 20140918
  6. DOXAZOSIN [Concomitant]
     Active Substance: DOXAZOSIN\DOXAZOSIN MESYLATE
     Indication: BLOOD PRESSURE
     Route: 048
     Dates: start: 2002, end: 20140918
  7. METOCLOPRAMIDE. [Suspect]
     Active Substance: METOCLOPRAMIDE
     Indication: NAUSEA
     Route: 048
     Dates: start: 20140303, end: 20140918

REACTIONS (2)
  - Disorientation [Recovered/Resolved]
  - Disease progression [Fatal]

NARRATIVE: CASE EVENT DATE: 20140721
